FAERS Safety Report 5744703-5 (Version None)
Quarter: 2008Q2

REPORT INFORMATION
  Report Type: 
  Country: None (occurrence: None)
  Receive Date: 20080520
  Receipt Date: 20080514
  Transmission Date: 20081010
  Serious: Yes (Hospitalization)
  Sender: FDA-Public Use
  Company Number: FR-PFIZER INC-2006067854

PATIENT
  Sex: Female
  Weight: 54 kg

DRUGS (3)
  1. SU-011,248 [Suspect]
     Indication: RENAL CANCER
     Route: 048
  2. SU-011,248 [Suspect]
     Indication: RENAL CELL CARCINOMA
     Route: 048
  3. SU-011,248 [Suspect]
     Route: 048

REACTIONS (2)
  - EAR INFECTION [None]
  - THROMBOCYTOPENIA [None]
